FAERS Safety Report 9979069 (Version 1)
Quarter: 2014Q1

REPORT INFORMATION
  Report Type: Report from Study
  Country: US (occurrence: US)
  Receive Date: 20140306
  Receipt Date: 20140306
  Transmission Date: 20141002
  Serious: No
  Sender: FDA-Public Use
  Company Number: US-ABBVIE-13P-163-1174047-00

PATIENT
  Age: 27 Year
  Sex: Male
  Weight: 74.91 kg

DRUGS (1)
  1. HUMIRA [Suspect]
     Indication: ANKYLOSING SPONDYLITIS
     Route: 058
     Dates: start: 2011

REACTIONS (4)
  - Sinus disorder [Unknown]
  - Skin papilloma [Not Recovered/Not Resolved]
  - Anogenital warts [Not Recovered/Not Resolved]
  - Nasopharyngitis [Unknown]
